FAERS Safety Report 5902140-4 (Version None)
Quarter: 2008Q3

REPORT INFORMATION
  Report Type: 
  Country: None (occurrence: None)
  Receive Date: 20080929
  Receipt Date: 20080917
  Transmission Date: 20090109
  Serious: Yes (Disabling, Other)
  Sender: FDA-Public Use
  Company Number: GB-PFIZER INC-2008079189

PATIENT
  Sex: Female

DRUGS (3)
  1. CHANTIX [Suspect]
     Indication: SMOKING CESSATION THERAPY
     Route: 048
     Dates: start: 20080807, end: 20080812
  2. FEMODENE [Concomitant]
     Route: 048
     Dates: start: 20020101
  3. ACETAMINOPHEN [Concomitant]
     Route: 048

REACTIONS (2)
  - CHEST PAIN [None]
  - MALAISE [None]
